FAERS Safety Report 4564920-X (Version None)
Quarter: 2005Q1

REPORT INFORMATION
  Report Type: 
  Country: None (occurrence: None)
  Receive Date: 20050131
  Receipt Date: 20050120
  Transmission Date: 20050727
  Serious: Yes (Hospitalization)
  Sender: FDA-Public Use
  Company Number: FR-JNJFOC-20050104912

PATIENT
  Sex: Female

DRUGS (2)
  1. INFLIXIMAB [Suspect]
     Indication: PYODERMA GANGRENOSUM
     Dosage: 11 INFUSION IN TOTAL
     Route: 042
  2. CORTANCYL [Concomitant]

REACTIONS (1)
  - LEGIONELLA INFECTION [None]
